FAERS Safety Report 18753299 (Version 3)
Quarter: 2021Q1

REPORT INFORMATION
  Report Type: Report from Study
  Country: US (occurrence: US)
  Receive Date: 20210118
  Receipt Date: 20210310
  Transmission Date: 20210419
  Serious: Yes (Other)
  Sender: FDA-Public Use
  Company Number: NVSC2021US010145

PATIENT
  Sex: Female

DRUGS (1)
  1. KISQALI [Suspect]
     Active Substance: RIBOCICLIB
     Indication: PRODUCT USED FOR UNKNOWN INDICATION
     Dosage: UNK
     Route: 048

REACTIONS (8)
  - Metastases to spine [Unknown]
  - Fatigue [Unknown]
  - Nausea [Unknown]
  - Intestinal metastasis [Unknown]
  - Metastases to liver [Unknown]
  - Condition aggravated [Unknown]
  - Asthenia [Unknown]
  - Constipation [Unknown]
